FAERS Safety Report 9752266 (Version 1)
Quarter: 2013Q4

REPORT INFORMATION
  Report Type: Spontaneous
  Country: US (occurrence: None)
  Receive Date: 20131211
  Receipt Date: 20131211
  Transmission Date: 20140711
  Serious: No
  Sender: FDA-Public Use
  Company Number: None

PATIENT
  Age: 76 Year
  Sex: Female
  Weight: 82.56 kg

DRUGS (1)
  1. CLONIDINE [Suspect]
     Indication: HYPERTENSION
     Dosage: 1 PILL TWICE DAILY TAKEN BY MOUTH
     Route: 048
     Dates: start: 20131001, end: 20131126

REACTIONS (19)
  - Tremor [None]
  - Headache [None]
  - Eye pain [None]
  - Chest pain [None]
  - Abdominal pain upper [None]
  - Bladder pain [None]
  - Hepatic pain [None]
  - Arthralgia [None]
  - Constipation [None]
  - Urinary retention [None]
  - Muscle spasms [None]
  - Dry eye [None]
  - Nasal dryness [None]
  - Dry throat [None]
  - Polydipsia [None]
  - Choking [None]
  - Blood pressure abnormal [None]
  - Reaction to drug excipients [None]
  - Product substitution issue [None]
